FAERS Safety Report 16257901 (Version 5)
Quarter: 2020Q3

REPORT INFORMATION
  Report Type: Report from Study
  Country: GB (occurrence: GB)
  Receive Date: 20190430
  Receipt Date: 20200910
  Transmission Date: 20201102
  Serious: Yes (Other)
  Sender: FDA-Public Use
  Company Number: PHHY2019GB096815

PATIENT
  Age: 60 Year
  Sex: Female

DRUGS (11)
  1. KISQALI [Suspect]
     Active Substance: RIBOCICLIB
     Dosage: 600 OT
     Route: 048
     Dates: start: 20190909
  2. KISQALI [Suspect]
     Active Substance: RIBOCICLIB
     Indication: BREAST CANCER
     Dosage: 600 OT
     Route: 048
     Dates: start: 20190205, end: 20190226
  3. KISQALI [Suspect]
     Active Substance: RIBOCICLIB
     Dosage: 600 OT
     Route: 048
     Dates: start: 20191007, end: 20191028
  4. KISQALI [Suspect]
     Active Substance: RIBOCICLIB
     Dosage: 600 OT
     Route: 048
     Dates: start: 20190531, end: 20190602
  5. KISQALI [Suspect]
     Active Substance: RIBOCICLIB
     Dosage: 600 OT
     Route: 048
     Dates: start: 20190401, end: 20190422
  6. KISQALI [Suspect]
     Active Substance: RIBOCICLIB
     Dosage: 600 OT
     Route: 048
     Dates: start: 20190708, end: 20190729
  7. KISQALI [Suspect]
     Active Substance: RIBOCICLIB
     Dosage: 600 OT
     Route: 048
     Dates: start: 20190603, end: 20190624
  8. KISQALI [Suspect]
     Active Substance: RIBOCICLIB
     Dosage: 600 OT
     Route: 048
     Dates: start: 20191107
  9. KISQALI [Suspect]
     Active Substance: RIBOCICLIB
     Dosage: 600 OT
     Route: 048
     Dates: start: 20190304, end: 20190325
  10. KISQALI [Suspect]
     Active Substance: RIBOCICLIB
     Dosage: 600 OT
     Route: 048
     Dates: start: 20190429, end: 20190520
  11. KISQALI [Suspect]
     Active Substance: RIBOCICLIB
     Dosage: 600 OT
     Route: 048
     Dates: start: 20190812, end: 20190902

REACTIONS (34)
  - Glomerular filtration rate decreased [Recovered/Resolved]
  - Nausea [Recovered/Resolved]
  - Joint swelling [Not Recovered/Not Resolved]
  - Neutropenia [Recovered/Resolved]
  - Gastrooesophageal reflux disease [Recovered/Resolved]
  - White blood cell count decreased [Recovered/Resolved]
  - Nausea [Recovered/Resolved]
  - Blood creatinine increased [Recovered/Resolved]
  - Neutropenia [Recovered/Resolved]
  - White blood cell count decreased [Recovered/Resolved]
  - White blood cell count decreased [Recovered/Resolved]
  - Alanine aminotransferase increased [Recovered/Resolved]
  - Hyponatraemia [Not Recovered/Not Resolved]
  - Fatigue [Not Recovered/Not Resolved]
  - Neutropenia [Recovered/Resolved]
  - Neutrophil count decreased [Recovered/Resolved with Sequelae]
  - Arthralgia [Not Recovered/Not Resolved]
  - Chronic kidney disease [Recovered/Resolved]
  - Arthritis [Not Recovered/Not Resolved]
  - White blood cell count decreased [Recovered/Resolved]
  - Neck pain [Not Recovered/Not Resolved]
  - Pyrexia [Recovered/Resolved]
  - Neutropenia [Recovered/Resolved]
  - Neutropenia [Recovered/Resolved]
  - White blood cell count decreased [Not Recovered/Not Resolved]
  - Dyspepsia [Recovering/Resolving]
  - Lymphocyte count decreased [Recovered/Resolved]
  - Neutrophil count decreased [Not Recovered/Not Resolved]
  - Glomerular filtration rate decreased [Recovered/Resolved]
  - Neutropenia [Not Recovered/Not Resolved]
  - White blood cell count decreased [Recovered/Resolved]
  - Blood creatinine increased [Recovered/Resolved]
  - Fatigue [Recovered/Resolved]
  - Fibromyalgia [Not Recovered/Not Resolved]

NARRATIVE: CASE EVENT DATE: 201902
